FAERS Safety Report 16831637 (Version 1)
Quarter: 2019Q3

REPORT INFORMATION
  Report Type: Spontaneous
  Country: GB (occurrence: GB)
  Receive Date: 20190920
  Receipt Date: 20190920
  Transmission Date: 20191005
  Serious: Yes (Other)
  Sender: FDA-Public Use
  Company Number: GB-TEVA-2019-GB-1109877

PATIENT
  Age: 91 Year
  Sex: Female

DRUGS (1)
  1. FENTANYL. [Suspect]
     Active Substance: FENTANYL
     Route: 062

REACTIONS (4)
  - Accidental overdose [Unknown]
  - Somnolence [Unknown]
  - Cold sweat [Unknown]
  - Slow response to stimuli [Unknown]
